FAERS Safety Report 8775282 (Version 3)
Quarter: 2012Q4

REPORT INFORMATION
  Report Type: 
  Country: DE (occurrence: DE)
  Receive Date: 20120910
  Receipt Date: 20121101
  Transmission Date: 20130627
  Serious: Yes (Death, Hospitalization, Other)
  Sender: FDA-Public Use
  Company Number: DE-CELGENEUS-062-21880-12090217

PATIENT
  Age: 75 Year
  Sex: Male
  Weight: 84 kg

DRUGS (13)
  1. REVLIMID [Suspect]
     Indication: CHRONIC LYMPHATIC LEUKEMIA
     Dosage: 10 Milligram
     Route: 048
     Dates: start: 20120214, end: 20120305
  2. REVLIMID [Suspect]
     Route: 048
     Dates: start: 20120322, end: 20120411
  3. REVLIMID [Suspect]
     Route: 048
     Dates: start: 20120419, end: 20120510
  4. REVLIMID [Suspect]
     Route: 048
     Dates: start: 20120521, end: 20120610
  5. REVLIMID [Suspect]
     Route: 048
     Dates: start: 20120619, end: 20120709
  6. REVLIMID [Suspect]
     Route: 048
     Dates: start: 201207, end: 20120807
  7. METOPROLOL [Concomitant]
     Indication: DRUG USE FOR UNKNOWN INDICATION
     Route: 065
  8. LERCANIDIPINE [Concomitant]
     Indication: DRUG USE FOR UNKNOWN INDICATION
     Route: 065
  9. DIGITOXIN [Concomitant]
     Indication: DRUG USE FOR UNKNOWN INDICATION
     Route: 065
  10. DUODART [Concomitant]
     Indication: DRUG USE FOR UNKNOWN INDICATION
     Dosage: 0.5mg/0.4mg
     Route: 065
  11. CODIOVAN [Concomitant]
     Indication: DRUG USE FOR UNKNOWN INDICATION
     Dosage: 160mg/25mg
     Route: 065
  12. COTRIMOXAZOL [Concomitant]
     Indication: DRUG USE FOR UNKNOWN INDICATION
     Route: 065
  13. FAMCICLOVIR [Concomitant]
     Indication: DRUG USE FOR UNKNOWN INDICATION
     Route: 065

REACTIONS (7)
  - Chronic lymphocytic leukaemia [Fatal]
  - General physical health deterioration [Not Recovered/Not Resolved]
  - Cardiac failure [Not Recovered/Not Resolved]
  - Hypertension [Recovered/Resolved]
  - Prerenal failure [Recovered/Resolved]
  - Hypercalcaemia [Not Recovered/Not Resolved]
  - Diarrhoea [Recovered/Resolved]
